FAERS Safety Report 5676678-1 (Version None)
Quarter: 2008Q2

REPORT INFORMATION
  Report Type: 
  Country: None (occurrence: None)
  Receive Date: 20080219
  Receipt Date: 20060905
  Transmission Date: 20081010
  Serious: Yes (Other)
  Sender: FDA-Public Use
  Company Number: 200610263BBE

PATIENT
  Age: 49 Year
  Sex: Male
  Weight: 84 kg

DRUGS (4)
  1. ALPHA1-PROTEINASE INHIBITOR (HUMAN) - TALECRIS [Suspect]
     Indication: ALPHA-1 ANTI-TRYPSIN DEFICIENCY
     Dosage: 60 MG/KG;QW;IV
     Route: 042
     Dates: start: 20060612, end: 20060905
  2. TIOTROPIUM [Concomitant]
  3. ADVAIR DISKUS 100/50 [Concomitant]
  4. IBUPROFEN [Concomitant]

REACTIONS (1)
  - RASH [None]
